FAERS Safety Report 17084112 (Version 2)
Quarter: 2019Q4

REPORT INFORMATION
  Report Type: Spontaneous
  Country: JP (occurrence: JP)
  Receive Date: 20191127
  Receipt Date: 20191220
  Transmission Date: 20200122
  Serious: Yes (Hospitalization, Other)
  Sender: FDA-Public Use
  Company Number: JP-GILEAD-2019-0439451

PATIENT
  Age: 58 Year
  Sex: Male

DRUGS (9)
  1. EPCLUSA [Suspect]
     Active Substance: SOFOSBUVIR\VELPATASVIR
     Indication: HEPATIC CIRRHOSIS
  2. RIFXIMA [Concomitant]
     Active Substance: RIFAXIMIN
     Indication: HYPERAMMONAEMIA
     Dosage: 400 MG, TID
     Route: 048
  3. SAMSCA [Concomitant]
     Active Substance: TOLVAPTAN
     Indication: FLUID RETENTION
     Dosage: 7.5 MG
     Route: 048
  4. SPIRONOLACTONE. [Concomitant]
     Active Substance: SPIRONOLACTONE
     Indication: OEDEMA DUE TO HEPATIC DISEASE
     Dosage: UNK
     Route: 048
  5. LACTULOSE. [Concomitant]
     Active Substance: LACTULOSE
     Indication: HYPERAMMONAEMIA
     Dosage: UNK
     Route: 048
  6. EPCLUSA [Suspect]
     Active Substance: SOFOSBUVIR\VELPATASVIR
     Indication: HEPATITIS C
     Dosage: 1 DOSAGE FORM, UNK
     Route: 048
     Dates: start: 20190311, end: 20190603
  7. L CARTIN FF [Concomitant]
     Active Substance: LEVOCARNITINE
     Indication: CARNITINE DECREASED
     Dosage: 1.5 G
     Route: 048
  8. AMINOLEBAN EN [Concomitant]
     Active Substance: UNSPECIFIED INGREDIENT
     Indication: NUTRITIONAL SUPPLEMENTATION
     Dosage: 50 G
     Route: 048
  9. REMITCH [Concomitant]
     Active Substance: NALFURAFINE HYDROCHLORIDE
     Indication: PRURITUS
     Dosage: 2.5 UG
     Route: 048

REACTIONS (1)
  - Hepatocellular carcinoma [Recovered/Resolved]

NARRATIVE: CASE EVENT DATE: 20190902
